FAERS Safety Report 8548829-2 (Version None)
Quarter: 2012Q3

REPORT INFORMATION
  Report Type: 
  Country: None (occurrence: None)
  Receive Date: 20120730
  Receipt Date: 20120718
  Transmission Date: 20120928
  Serious: Yes (Death, Hospitalization)
  Sender: FDA-Public Use
  Company Number: CN-BRISTOL-MYERS SQUIBB COMPANY-16789398

PATIENT
  Age: 69 Year
  Sex: Female

DRUGS (4)
  1. LEUCOVORIN CALCIUM [Suspect]
     Indication: RECTAL CANCER METASTATIC
     Dosage: IV DRIP
     Route: 041
     Dates: start: 20120329, end: 20120622
  2. CETUXIMAB [Suspect]
     Indication: RECTAL CANCER METASTATIC
     Dosage: IV DRIP
     Route: 041
     Dates: start: 20120329, end: 20120622
  3. FLUOROURACIL [Suspect]
     Indication: RECTAL CANCER METASTATIC
     Dosage: IV DRIP
     Route: 041
     Dates: start: 20120329, end: 20120622
  4. OXALIPLATIN [Suspect]
     Indication: RECTAL CANCER METASTATIC
     Dosage: IV DRIP
     Route: 041
     Dates: start: 20120329, end: 20120622

REACTIONS (1)
  - SEPTIC SHOCK [None]
